FAERS Safety Report 23053502 (Version 1)
Quarter: 2023Q4

REPORT INFORMATION
  Report Type: Spontaneous
  Country: PL (occurrence: PL)
  Receive Date: 20231011
  Receipt Date: 20231011
  Transmission Date: 20240109
  Serious: Yes (Death, Life-Threatening, Other)
  Sender: FDA-Public Use
  Company Number: PL-CELLTRION INC.-2023PL019180

PATIENT

DRUGS (64)
  1. RITUXIMAB [Suspect]
     Active Substance: RITUXIMAB
     Indication: Diffuse large B-cell lymphoma
     Dosage: UNK, 1ST CYCLE
     Route: 065
     Dates: start: 20201215, end: 20201218
  2. RITUXIMAB [Suspect]
     Active Substance: RITUXIMAB
     Dosage: UNK, 2ND CYCLE
     Route: 065
     Dates: start: 20210105, end: 20210106
  3. RITUXIMAB [Suspect]
     Active Substance: RITUXIMAB
     Dosage: UNK, 3RD CYCLE
     Route: 065
     Dates: start: 20210129, end: 20210130
  4. RITUXIMAB [Suspect]
     Active Substance: RITUXIMAB
     Dosage: UNK, 4TH CYCLE
     Route: 065
     Dates: start: 20210219, end: 20210220
  5. RITUXIMAB [Suspect]
     Active Substance: RITUXIMAB
     Dosage: UNK, 5TH CYCLE
     Route: 065
     Dates: start: 20210315, end: 20210316
  6. RITUXIMAB [Suspect]
     Active Substance: RITUXIMAB
     Dosage: UNK, 6TH CYCLE
     Route: 065
     Dates: start: 20210406, end: 20210407
  7. RITUXIMAB [Suspect]
     Active Substance: RITUXIMAB
     Dosage: UNK, 7TH CYCLE
     Route: 065
     Dates: start: 20210429
  8. RITUXIMAB [Suspect]
     Active Substance: RITUXIMAB
     Dosage: UNK, 8TH CYCLE
     Route: 065
     Dates: start: 20210520, end: 20210521
  9. RITUXIMAB [Suspect]
     Active Substance: RITUXIMAB
     Dosage: UNK
     Route: 065
     Dates: start: 20220607, end: 20220609
  10. RITUXIMAB [Suspect]
     Active Substance: RITUXIMAB
     Dosage: UNK
     Route: 065
     Dates: start: 20220702, end: 20220704
  11. RITUXIMAB [Suspect]
     Active Substance: RITUXIMAB
     Dosage: UNK
     Route: 065
     Dates: start: 20220916, end: 20220918
  12. RITUXIMAB [Suspect]
     Active Substance: RITUXIMAB
     Dosage: UNK
     Route: 065
     Dates: start: 20221007, end: 20221008
  13. RITUXIMAB [Suspect]
     Active Substance: RITUXIMAB
     Dosage: UNK
     Route: 065
     Dates: start: 20221127, end: 20221129
  14. KYMRIAH [Suspect]
     Active Substance: TISAGENLECLEUCEL
     Indication: Diffuse large B-cell lymphoma
     Dosage: UNK UNK, ONCE/SINGLE
     Route: 042
     Dates: start: 20221207
  15. POLATUZUMAB VEDOTIN [Suspect]
     Active Substance: POLATUZUMAB VEDOTIN
     Indication: Diffuse large B-cell lymphoma
     Dosage: UNK
     Route: 065
  16. CISPLATIN [Suspect]
     Active Substance: CISPLATIN
     Indication: Diffuse large B-cell lymphoma
     Dosage: UNK
     Route: 065
     Dates: start: 20220607, end: 20220609
  17. CISPLATIN [Suspect]
     Active Substance: CISPLATIN
     Dosage: UNK
     Route: 065
     Dates: start: 20220702, end: 20220704
  18. CYCLOPHOSPHAMIDE [Suspect]
     Active Substance: CYCLOPHOSPHAMIDE
     Indication: Diffuse large B-cell lymphoma
     Dosage: UNK, 1ST CYCLE
     Route: 065
     Dates: start: 20201215, end: 20201218
  19. CYCLOPHOSPHAMIDE [Suspect]
     Active Substance: CYCLOPHOSPHAMIDE
     Dosage: UNK, 2ND CYCLE
     Route: 065
     Dates: start: 20210105, end: 20210106
  20. CYCLOPHOSPHAMIDE [Suspect]
     Active Substance: CYCLOPHOSPHAMIDE
     Dosage: UNK, 3RD CYCLE
     Route: 065
     Dates: start: 20210129, end: 20210130
  21. CYCLOPHOSPHAMIDE [Suspect]
     Active Substance: CYCLOPHOSPHAMIDE
     Dosage: UNK, 4TH CYCLE
     Route: 065
     Dates: start: 20210219, end: 20210220
  22. CYCLOPHOSPHAMIDE [Suspect]
     Active Substance: CYCLOPHOSPHAMIDE
     Dosage: UNK, 5TH CYCLE
     Route: 065
     Dates: start: 20210315, end: 20210316
  23. CYCLOPHOSPHAMIDE [Suspect]
     Active Substance: CYCLOPHOSPHAMIDE
     Dosage: UNK, 6TH CYCLE
     Route: 065
     Dates: start: 20210406, end: 20210407
  24. CYCLOPHOSPHAMIDE [Suspect]
     Active Substance: CYCLOPHOSPHAMIDE
     Dosage: UNK, 7TH CYCLE
     Route: 065
     Dates: start: 20210429
  25. CYCLOPHOSPHAMIDE [Suspect]
     Active Substance: CYCLOPHOSPHAMIDE
     Dosage: UNK, 8TH CYCLE
     Route: 065
     Dates: start: 20210520, end: 20210521
  26. DEXAMETHASONE [Suspect]
     Active Substance: DEXAMETHASONE
     Indication: Diffuse large B-cell lymphoma
     Dosage: UNK
     Route: 065
     Dates: start: 20220607, end: 20220609
  27. DEXAMETHASONE [Suspect]
     Active Substance: DEXAMETHASONE
     Dosage: UNK
     Route: 065
     Dates: start: 20220702, end: 20220704
  28. METHOTREXATE [Suspect]
     Active Substance: METHOTREXATE
     Indication: Diffuse large B-cell lymphoma
     Dosage: UNK, 1ST CYCLE
     Route: 065
     Dates: start: 20201215, end: 20201218
  29. METHOTREXATE [Suspect]
     Active Substance: METHOTREXATE
     Dosage: UNK, 2ND CYCLE
     Route: 065
     Dates: start: 20210105, end: 20210106
  30. METHOTREXATE [Suspect]
     Active Substance: METHOTREXATE
     Dosage: UNK, 3RD CYCLE
     Route: 065
     Dates: start: 20210129, end: 20210130
  31. METHOTREXATE [Suspect]
     Active Substance: METHOTREXATE
     Dosage: UNK, 4TH CYCLE
     Route: 065
     Dates: start: 20210219, end: 20210220
  32. METHOTREXATE [Suspect]
     Active Substance: METHOTREXATE
     Dosage: UNK, 5TH CYCLE
     Route: 065
     Dates: start: 20210315, end: 20210316
  33. METHOTREXATE [Suspect]
     Active Substance: METHOTREXATE
     Dosage: UNK, 6TH CYCLE
     Route: 065
     Dates: start: 20210406, end: 20210407
  34. METHOTREXATE [Suspect]
     Active Substance: METHOTREXATE
     Dosage: UNK, 7TH CYCLE
     Route: 065
     Dates: start: 20210429
  35. METHOTREXATE [Suspect]
     Active Substance: METHOTREXATE
     Dosage: UNK, 8TH CYCLE
     Route: 065
     Dates: start: 20210520, end: 20210521
  36. CYTARABINE [Suspect]
     Active Substance: CYTARABINE
     Indication: Diffuse large B-cell lymphoma
     Dosage: UNK
     Route: 065
     Dates: start: 20220607, end: 20220609
  37. CYTARABINE [Suspect]
     Active Substance: CYTARABINE
     Dosage: UNK
     Route: 065
     Dates: start: 20220702, end: 20220704
  38. DOXORUBICIN [Suspect]
     Active Substance: DOXORUBICIN
     Indication: Diffuse large B-cell lymphoma
     Dosage: UNK, 1ST CYCLE
     Route: 065
     Dates: start: 20201215, end: 20201218
  39. DOXORUBICIN [Suspect]
     Active Substance: DOXORUBICIN
     Dosage: UNK, 2ND CYCLE
     Route: 065
     Dates: start: 20210105, end: 20210106
  40. DOXORUBICIN [Suspect]
     Active Substance: DOXORUBICIN
     Dosage: UNK, 3RD CYCLE
     Route: 065
     Dates: start: 20210129, end: 20210130
  41. DOXORUBICIN [Suspect]
     Active Substance: DOXORUBICIN
     Dosage: UNK, 4TH CYCLE
     Route: 065
     Dates: start: 20210219, end: 20210220
  42. DOXORUBICIN [Suspect]
     Active Substance: DOXORUBICIN
     Dosage: UNK, 5TH CYCLE
     Route: 065
     Dates: start: 20210315, end: 20210316
  43. DOXORUBICIN [Suspect]
     Active Substance: DOXORUBICIN
     Dosage: UNK, 6TH CYCLE
     Route: 065
     Dates: start: 20210406, end: 20210407
  44. DOXORUBICIN [Suspect]
     Active Substance: DOXORUBICIN
     Dosage: UNK, 7TH CYCLE
     Route: 065
     Dates: start: 20210429
  45. DOXORUBICIN [Suspect]
     Active Substance: DOXORUBICIN
     Dosage: UNK, 8TH CYCLE
     Route: 065
     Dates: start: 20210520, end: 20210521
  46. PREDNISONE [Suspect]
     Active Substance: PREDNISONE
     Indication: Diffuse large B-cell lymphoma
     Dosage: UNK, 1ST CYCLE
     Route: 065
     Dates: start: 20201215, end: 20201218
  47. PREDNISONE [Suspect]
     Active Substance: PREDNISONE
     Dosage: UNK, 2ND CYCLE
     Route: 065
     Dates: start: 20210105, end: 20210106
  48. PREDNISONE [Suspect]
     Active Substance: PREDNISONE
     Dosage: UNK, 3RD CYCLE
     Route: 065
     Dates: start: 20210129, end: 20210130
  49. PREDNISONE [Suspect]
     Active Substance: PREDNISONE
     Dosage: UNK, 4TH CYCLE
     Route: 065
     Dates: start: 20210219, end: 20210220
  50. PREDNISONE [Suspect]
     Active Substance: PREDNISONE
     Dosage: UNK, 5TH CYCLE
     Route: 065
     Dates: start: 20210315, end: 20210316
  51. PREDNISONE [Suspect]
     Active Substance: PREDNISONE
     Dosage: UNK, 6TH CYCLE
     Route: 065
     Dates: start: 20210406, end: 20210407
  52. PREDNISONE [Suspect]
     Active Substance: PREDNISONE
     Dosage: UNK, 7TH CYCLE
     Route: 065
     Dates: start: 20210429
  53. PREDNISONE [Suspect]
     Active Substance: PREDNISONE
     Dosage: UNK, 8TH CYCLE
     Route: 065
     Dates: start: 20210520, end: 20210521
  54. BENDAMUSTINE [Suspect]
     Active Substance: BENDAMUSTINE
     Indication: Diffuse large B-cell lymphoma
     Dosage: UNK
     Route: 065
     Dates: start: 20220916, end: 20220918
  55. BENDAMUSTINE [Suspect]
     Active Substance: BENDAMUSTINE
     Dosage: UNK
     Route: 065
     Dates: start: 20221007, end: 20221008
  56. BENDAMUSTINE [Suspect]
     Active Substance: BENDAMUSTINE
     Dosage: UNK
     Route: 065
     Dates: start: 20221127, end: 20221128
  57. VINCRISTINE [Suspect]
     Active Substance: VINCRISTINE
     Indication: Diffuse large B-cell lymphoma
     Dosage: UNK, 1ST CYCLE
     Route: 065
     Dates: start: 20201215, end: 20201218
  58. VINCRISTINE [Suspect]
     Active Substance: VINCRISTINE
     Dosage: UNK, 2ND CYCLE
     Route: 065
     Dates: start: 20210105, end: 20210106
  59. VINCRISTINE [Suspect]
     Active Substance: VINCRISTINE
     Dosage: UNK, 3RD CYCLE
     Route: 065
     Dates: start: 20210129, end: 20210130
  60. VINCRISTINE [Suspect]
     Active Substance: VINCRISTINE
     Dosage: UNK, 4THC CYCLE
     Route: 065
     Dates: start: 20210219, end: 20210220
  61. VINCRISTINE [Suspect]
     Active Substance: VINCRISTINE
     Dosage: UNK, 5TH CYCLE
     Route: 065
     Dates: start: 20210315, end: 20210316
  62. VINCRISTINE [Suspect]
     Active Substance: VINCRISTINE
     Dosage: UNK, 6TH CYCLE
     Route: 065
     Dates: start: 20210406, end: 20210407
  63. VINCRISTINE [Suspect]
     Active Substance: VINCRISTINE
     Dosage: UNK, 7TH CYCLE
     Route: 065
     Dates: start: 20210429
  64. VINCRISTINE [Suspect]
     Active Substance: VINCRISTINE
     Dosage: UNK, 8TH CYCLE
     Route: 065
     Dates: start: 20210520, end: 20210521

REACTIONS (4)
  - Death [Fatal]
  - Thrombocytopenia [Unknown]
  - Diffuse large B-cell lymphoma recurrent [Unknown]
  - Immune effector cell-associated neurotoxicity syndrome [Recovered/Resolved]

NARRATIVE: CASE EVENT DATE: 20230408
